FAERS Safety Report 20862840 (Version 1)
Quarter: 2022Q2

REPORT INFORMATION
  Report Type: Spontaneous
  Country: US (occurrence: None)
  Receive Date: 20220523
  Receipt Date: 20220523
  Transmission Date: 20220720
  Serious: Yes (Hospitalization)
  Sender: FDA-Public Use
  Company Number: None

PATIENT
  Age: 75 Year
  Sex: Male
  Weight: 81.19 kg

DRUGS (18)
  1. ABIRATERONE [Suspect]
     Active Substance: ABIRATERONE
     Indication: Prostate cancer
     Dosage: FREQUENCY : DAILY;?
     Route: 048
  2. CALCIUM\CHOLECALCIFEROL [Concomitant]
     Active Substance: CALCIUM\CHOLECALCIFEROL
  3. MINERALS\VITAMINS [Concomitant]
     Active Substance: MINERALS\VITAMINS
  4. CETIRIZINE HCL [Concomitant]
     Active Substance: CETIRIZINE HYDROCHLORIDE
  5. CHOLESTYRAMINE [Concomitant]
  6. CRESTOR [Concomitant]
     Active Substance: ROSUVASTATIN CALCIUM
  7. LYSINE [Concomitant]
     Active Substance: LYSINE
  8. LOSARTAN POTASSIUM [Concomitant]
  9. MAGNESIUM HYDROXIDE [Concomitant]
  10. METHYLCELLULOSES [Concomitant]
     Active Substance: METHYLCELLULOSES
  11. NICOTINAMIDE [Concomitant]
     Active Substance: NIACINAMIDE
  12. PANTOPRAZOLE SODIUM [Concomitant]
  13. PANTOPRAZOLE SODIUM [Concomitant]
  14. PREDNISONE [Concomitant]
     Active Substance: PREDNISONE
  15. PROBIOTIC [Concomitant]
  16. TAMSULOSIN HCL [Concomitant]
  17. TRELSTAR [Concomitant]
     Active Substance: TRIPTORELIN PAMOATE
  18. XGEVA [Concomitant]
     Active Substance: DENOSUMAB

REACTIONS (2)
  - Infection [None]
  - Adrenal insufficiency [None]
